FAERS Safety Report 13612664 (Version 1)
Quarter: 2017Q2

REPORT INFORMATION
  Report Type: Spontaneous
  Country: US (occurrence: US)
  Receive Date: 20170605
  Receipt Date: 20170605
  Transmission Date: 20170830
  Serious: Yes (Other)
  Sender: FDA-Public Use
  Company Number: US-NOVOPROD-548001

PATIENT
  Age: 67 Year
  Sex: Female
  Weight: 88.44 kg

DRUGS (1)
  1. VICTOZA [Suspect]
     Active Substance: LIRAGLUTIDE
     Indication: TYPE 2 DIABETES MELLITUS
     Dosage: 0.6 MG, QD
     Route: 058
     Dates: start: 201504, end: 20170522

REACTIONS (3)
  - Gastric ulcer [Not Recovered/Not Resolved]
  - Electrocardiogram T wave inversion [Unknown]
  - Lipase increased [Unknown]

NARRATIVE: CASE EVENT DATE: 20170522
